FAERS Safety Report 6321808-1 (Version None)
Quarter: 2009Q3

REPORT INFORMATION
  Report Type: 
  Country: None (occurrence: None)
  Receive Date: 20090821
  Receipt Date: 20090821
  Transmission Date: 20100115
  Serious: Yes (Other)
  Sender: FDA-Public Use
  Company Number: None

PATIENT
  Age: 47 Year
  Sex: Female
  Weight: 107.3211 kg

DRUGS (2)
  1. CLIMARA [Suspect]
     Indication: MENOPAUSAL SYMPTOMS
     Dosage: 0.025 1X WEEKS TRANSDERMAL
     Route: 062
     Dates: start: 20060101, end: 20070101
  2. PRILOSEC [Concomitant]

REACTIONS (2)
  - DEVICE ADHESION ISSUE [None]
  - RASH [None]
